FAERS Safety Report 16095153 (Version 1)
Quarter: 2019Q2

REPORT INFORMATION
  Report Type: Spontaneous
  Country: US (occurrence: US)
  Receive Date: 20190320
  Receipt Date: 20190320
  Transmission Date: 20190711
  Serious: Yes (Hospitalization, Other)
  Sender: FDA-Public Use
  Company Number: None

PATIENT
  Age: 81 Year
  Sex: Female

DRUGS (13)
  1. PANTOPRAZOLE 40MG TABLETS [Concomitant]
     Active Substance: PANTOPRAZOLE
     Dates: start: 20181018
  2. POTASSIUM 25MEQ TABLETS [Concomitant]
     Dates: start: 20181018
  3. ALEVE PM 220-25MG TABLETS [Concomitant]
     Dates: start: 20181018
  4. TURMERIC 500MG CAPSULES [Concomitant]
     Dates: start: 20181018
  5. VITAMIN D-3 2000 IU CAPSULES [Concomitant]
     Dates: start: 20181018
  6. PLAVIX 75MG TABLETS [Concomitant]
     Dates: start: 20181018
  7. SPIRONOLACTONE 25MG TABLETS [Concomitant]
     Dates: start: 20181018
  8. CARVEDILOL 6.25MG TABLETS [Concomitant]
     Dates: start: 20181018
  9. SYNTHROID 175MCG TABLETS [Concomitant]
     Dates: start: 20181018
  10. VSL#3 PACK [Concomitant]
     Dates: start: 20181018
  11. LOSARTAN POTASSIUM 25MG TABLETS [Concomitant]
     Active Substance: LOSARTAN POTASSIUM
     Dates: start: 20181018
  12. ENBREL [Suspect]
     Active Substance: ETANERCEPT
     Indication: RHEUMATOID ARTHRITIS
     Dosage: ?          OTHER FREQUENCY:ONCE A WEEK;?
     Route: 058
  13. ATORVASTATIN 40MG TABLETS [Concomitant]
     Dates: start: 20181018

REACTIONS (2)
  - Cerebrovascular accident [None]
  - Product dose omission [None]

NARRATIVE: CASE EVENT DATE: 20190318
